FAERS Safety Report 5916550-2 (Version None)
Quarter: 2008Q4

REPORT INFORMATION
  Report Type: 
  Country: None (occurrence: None)
  Receive Date: 20081013
  Receipt Date: 20081006
  Transmission Date: 20090506
  Serious: Yes (Death)
  Sender: FDA-Public Use
  Company Number: B0540791A

PATIENT

DRUGS (9)
  1. BUSULPHAN [Suspect]
     Indication: CHEMOTHERAPY
     Dosage: 4MGK FOUR TIMES PER DAY
     Route: 048
  2. MELPHALAN [Suspect]
     Indication: CHEMOTHERAPY
     Dosage: 140MGM2 PER DAY
  3. VINCRISTINE [Concomitant]
     Indication: CHEMOTHERAPY
  4. DOXORUBICIN HCL [Concomitant]
     Indication: CHEMOTHERAPY
  5. IFOSFAMIDE [Concomitant]
     Indication: CHEMOTHERAPY
  6. CYCLOPHOSPHAMIDE [Concomitant]
     Indication: CHEMOTHERAPY
  7. ETOPOSIDE [Concomitant]
     Indication: CHEMOTHERAPY
  8. NEUPOGEN [Concomitant]
  9. STEM CELL TRANSPLANT [Concomitant]

REACTIONS (2)
  - DRUG TOXICITY [None]
  - MULTI-ORGAN FAILURE [None]
